FAERS Safety Report 8047566 (Version 7)
Quarter: 2013Q3

REPORT INFORMATION
  Report Type: Spontaneous
  Country: US (occurrence: US)
  Receive Date: 20110721
  Receipt Date: 20130916
  Transmission Date: 20140515
  Serious: Yes (Hospitalization, Other)
  Sender: FDA-Public Use
  Company Number: US-ROCHE-790234

PATIENT
  Age: 21 Year
  Sex: Male
  Weight: 74.91 kg

DRUGS (1)
  1. ACCUTANE [Suspect]
     Indication: ACNE CYSTIC
     Route: 048
     Dates: start: 199906, end: 200004

REACTIONS (15)
  - Colitis ulcerative [Unknown]
  - Inflammatory bowel disease [Unknown]
  - Depression [Not Recovered/Not Resolved]
  - Injury [Unknown]
  - Large intestine polyp [Unknown]
  - Irritable bowel syndrome [Unknown]
  - Osteopenia [Unknown]
  - Dry skin [Unknown]
  - Lip dry [Unknown]
  - Blood cholesterol increased [Unknown]
  - Nausea [Unknown]
  - Eczema [Unknown]
  - Folliculitis [Unknown]
  - Angiokeratoma [Unknown]
  - Blood triglycerides increased [Unknown]
